FAERS Safety Report 6992838-1 (Version None)
Quarter: 2010Q3

REPORT INFORMATION
  Report Type: 
  Country: None (occurrence: None)
  Receive Date: 20100917
  Receipt Date: 20100910
  Transmission Date: 20110219
  Serious: Yes (Hospitalization)
  Sender: FDA-Public Use
  Company Number: A0881595A

PATIENT
  Age: 46 Year
  Sex: Male
  Weight: 77.3 kg

DRUGS (6)
  1. PAXIL [Suspect]
     Indication: DEPRESSION
     Dosage: 30MG PER DAY
     Route: 048
     Dates: start: 20080101
  2. BUPROPION HCL [Suspect]
     Indication: DEPRESSION
     Dosage: 75MG PER DAY
     Route: 048
     Dates: start: 20080101, end: 20100820
  3. FENTANYL CITRATE [Suspect]
     Dosage: 1PAT EVERY 3 DAYS
     Route: 062
     Dates: start: 20100820
  4. TAMSULOSIN HCL [Suspect]
     Dosage: .4MG PER DAY
     Route: 048
     Dates: start: 20090101
  5. PROTONIX [Suspect]
     Dosage: 40MG PER DAY
     Route: 048
     Dates: start: 19900101
  6. KLONOPIN [Suspect]
     Indication: ANXIETY
     Dosage: .5MG AS REQUIRED
     Route: 048
     Dates: start: 20100101

REACTIONS (4)
  - BREAKTHROUGH PAIN [None]
  - CONVULSION [None]
  - RESPIRATORY DEPRESSION [None]
  - UNRESPONSIVE TO STIMULI [None]
